FAERS Safety Report 12158778 (Version 1)
Quarter: 2016Q1

REPORT INFORMATION
  Report Type: Spontaneous
  Country: US (occurrence: US)
  Receive Date: 20160308
  Receipt Date: 20160308
  Transmission Date: 20160526
  Serious: No
  Sender: FDA-Public Use
  Company Number: US-JNJFOC-20160206708

PATIENT
  Age: 85 Year
  Sex: Male
  Weight: 65.77 kg

DRUGS (2)
  1. CHILDRENS TYLENOL [Suspect]
     Active Substance: ACETAMINOPHEN
     Indication: PAIN
     Dosage: USE VERY OFTEN, TAKES 3 TEASPOONS AT ONE TIME AND NEVER MORE THAN THAT IN A DAY.
     Route: 048
  2. CHILDRENS TYLENOL [Suspect]
     Active Substance: ACETAMINOPHEN
     Indication: HEADACHE
     Dosage: USE VERY OFTEN, TAKES 3 TEASPOONS AT ONE TIME AND NEVER MORE THAN THAT IN A DAY.
     Route: 048

REACTIONS (3)
  - Drug administered to patient of inappropriate age [Unknown]
  - Expired product administered [Unknown]
  - Off label use [Unknown]
